FAERS Safety Report 21708025 (Version 1)
Quarter: 2022Q4

REPORT INFORMATION
  Report Type: Report from Study
  Country: CL (occurrence: CL)
  Receive Date: 20221209
  Receipt Date: 20221209
  Transmission Date: 20230113
  Serious: Yes (Death, Life-Threatening, Hospitalization, Other)
  Sender: FDA-Public Use
  Company Number: CL-BRISTOL-MYERS SQUIBB COMPANY-2022-143510

PATIENT
  Age: 78 Year
  Sex: Male
  Weight: 47.6 kg

DRUGS (15)
  1. NIVOLUMAB [Suspect]
     Active Substance: NIVOLUMAB
     Indication: Non-small cell lung cancer
     Dosage: DOSE DELAYED?MOST RECENT DOSE ON 03-NOV-2022.
     Route: 042
     Dates: start: 20220629
  2. IPILIMUMAB [Suspect]
     Active Substance: IPILIMUMAB
     Indication: Non-small cell lung cancer
     Dosage: DOSE DELAYED?MOST RECENT DOSE ON 03-NOV-2022.
     Route: 042
     Dates: start: 20220629
  3. IPILIMUMAB [Suspect]
     Active Substance: IPILIMUMAB
     Dosage: DOSE DELAYED?MOST RECENT DOSE ON 03-NOV-2022.
     Route: 042
     Dates: start: 20221103
  4. IPRATROPIUM BROMIDE [Concomitant]
     Active Substance: IPRATROPIUM BROMIDE
     Indication: Product used for unknown indication
     Dosage: DOSE= 8 PUFF
     Route: 065
     Dates: start: 20170101
  5. TRAMADOL [Concomitant]
     Active Substance: TRAMADOL
     Indication: Product used for unknown indication
     Route: 065
     Dates: start: 20220101
  6. ACETAMINOPHEN [Concomitant]
     Active Substance: ACETAMINOPHEN
     Indication: Product used for unknown indication
     Route: 065
     Dates: start: 20220101
  7. SERTRALINE [Concomitant]
     Active Substance: SERTRALINE HYDROCHLORIDE
     Indication: Product used for unknown indication
     Route: 065
     Dates: start: 20220101
  8. UREA 10% [Concomitant]
     Indication: Product used for unknown indication
     Dosage: DOSE: 2 APPLICATION
     Route: 065
     Dates: start: 20220713
  9. CHLORPHENIRAMINE MALEATE [Concomitant]
     Active Substance: CHLORPHENIRAMINE MALEATE
     Indication: Product used for unknown indication
     Route: 065
     Dates: start: 20220803
  10. LACTULOSE [Concomitant]
     Active Substance: LACTULOSE
     Indication: Product used for unknown indication
     Route: 065
     Dates: start: 20220810
  11. ALBUTEROL [Concomitant]
     Active Substance: ALBUTEROL
     Indication: Product used for unknown indication
     Route: 065
     Dates: start: 20220810
  12. BRONCARD [Concomitant]
     Indication: Product used for unknown indication
     Route: 065
     Dates: start: 20220921
  13. BENSERAZIDE [Concomitant]
     Active Substance: BENSERAZIDE
     Indication: Product used for unknown indication
     Route: 065
     Dates: start: 20221006
  14. LEVODOPA [Concomitant]
     Active Substance: LEVODOPA
     Indication: Product used for unknown indication
     Route: 065
     Dates: start: 20221006
  15. MIRTAZAPINE [Concomitant]
     Active Substance: MIRTAZAPINE
     Indication: Product used for unknown indication
     Route: 065
     Dates: start: 20221012

REACTIONS (2)
  - Pneumonitis [Recovered/Resolved]
  - Septic shock [Fatal]

NARRATIVE: CASE EVENT DATE: 20221123
